FAERS Safety Report 15924446 (Version 3)
Quarter: 2019Q1

REPORT INFORMATION
  Report Type: Spontaneous
  Country: PT (occurrence: PT)
  Receive Date: 20190206
  Receipt Date: 20190320
  Transmission Date: 20190417
  Serious: Yes (Hospitalization, Other)
  Sender: FDA-Public Use
  Company Number: PT-AUROBINDO-AUR-APL-2019-005411

PATIENT

DRUGS (4)
  1. LEVOTHYROXINE. [Suspect]
     Active Substance: LEVOTHYROXINE
     Indication: HYPOTHYROIDISM
     Dosage: 150 MICROGRAM
     Route: 065
  2. LEVOTHYROXINE. [Suspect]
     Active Substance: LEVOTHYROXINE
     Indication: WEIGHT DECREASED
     Dosage: 75 MICROGRAM
     Route: 065
  3. LEVOTHYROXINE. [Suspect]
     Active Substance: LEVOTHYROXINE
     Dosage: 250 MICROGRAM
     Route: 065
  4. METFORMIN [Suspect]
     Active Substance: METFORMIN HYDROCHLORIDE
     Indication: WEIGHT DECREASED
     Dosage: UNK
     Route: 065

REACTIONS (9)
  - Hyperthyroidism [Unknown]
  - Off label use [Unknown]
  - Product use in unapproved indication [Unknown]
  - Intracranial venous sinus thrombosis [Recovered/Resolved]
  - Overdose [Unknown]
  - Cerebral haemorrhage [Recovered/Resolved]
  - Cerebral venous thrombosis [Recovered/Resolved]
  - Drug abuse [Unknown]
  - Hypercoagulation [Recovered/Resolved]
